FAERS Safety Report 11231487 (Version 1)
Quarter: 2015Q2

REPORT INFORMATION
  Report Type: Spontaneous
  Country: US (occurrence: None)
  Receive Date: 20150630
  Receipt Date: 20150630
  Transmission Date: 20150821
  Serious: Yes (Other)
  Sender: FDA-Public Use
  Company Number: None

PATIENT
  Age: 82 Year
  Sex: Female
  Weight: 102.51 kg

DRUGS (1)
  1. ARIPIPRAZOLE. [Suspect]
     Active Substance: ARIPIPRAZOLE
     Indication: SCHIZOPHRENIA, PARANOID TYPE
     Dosage: 1 TAB QHS/BEDTIME
     Route: 048
     Dates: start: 20150526, end: 20150629

REACTIONS (4)
  - Eye irritation [None]
  - Lip swelling [None]
  - Product substitution issue [None]
  - Eye swelling [None]

NARRATIVE: CASE EVENT DATE: 20150527
